FAERS Safety Report 18403160 (Version 1)
Quarter: 2020Q4

REPORT INFORMATION
  Report Type: Report from Study
  Country: None (occurrence: IE)
  Receive Date: 20201019
  Receipt Date: 20201019
  Transmission Date: 20210114
  Serious: Yes (Death, Other)
  Sender: FDA-Public Use
  Company Number: IE-ABBVIE-20K-229-3613974-00

PATIENT
  Age: 36 Year
  Sex: Male

DRUGS (3)
  1. AMGEVITA [Suspect]
     Active Substance: ADALIMUMAB
     Indication: PRODUCT USED FOR UNKNOWN INDICATION
     Route: 065
     Dates: start: 2020, end: 2020
  2. HUMIRA [Suspect]
     Active Substance: ADALIMUMAB
     Indication: PSORIATIC ARTHROPATHY
     Route: 058
     Dates: start: 20180807, end: 202005
  3. HUMIRA [Suspect]
     Active Substance: ADALIMUMAB
     Route: 058
     Dates: start: 2020

REACTIONS (13)
  - Therapeutic product effect decreased [Unknown]
  - Death [Fatal]
  - Dizziness [Unknown]
  - Seizure [Unknown]
  - Pulmonary embolism [Unknown]
  - Liver disorder [Unknown]
  - Malaise [Unknown]
  - Stress [Unknown]
  - Hepatic haemorrhage [Unknown]
  - Headache [Unknown]
  - Haematemesis [Unknown]
  - Blood test abnormal [Unknown]
  - Cardiac arrest [Unknown]

NARRATIVE: CASE EVENT DATE: 20201006
